FAERS Safety Report 10039162 (Version 1)
Quarter: 2014Q1

REPORT INFORMATION
  Report Type: Spontaneous
  Country: US (occurrence: None)
  Receive Date: 20140306
  Receipt Date: 20140306
  Transmission Date: 20141002
  Serious: Yes (Other)
  Sender: FDA-Public Use
  Company Number: 163-21880-13073273

PATIENT
  Age: 73 Year
  Sex: Female
  Weight: 56.25 kg

DRUGS (9)
  1. ACIDOPHILUS [Concomitant]
  2. VITAMIN D (ERGOCALCIFEROL) (CAPSULES) [Concomitant]
  3. TYLENOL EXTRA STRENGTH [Concomitant]
  4. FOLIC ACID [Concomitant]
  5. REVLIMID [Suspect]
     Indication: LYMPHOCYTIC LEUKAEMIA
     Route: 048
     Dates: start: 20130615
  6. ACYCLOVIR (ACICLOVIR) (ACICLOVIR) [Concomitant]
  7. ARZERRA (OFATUMUMAB) [Concomitant]
  8. BACTRIM DS [Concomitant]
  9. ACEBUTOLOL HCL [Concomitant]

REACTIONS (8)
  - Dehydration [None]
  - Full blood count decreased [None]
  - Cystitis [None]
  - Fungal infection [None]
  - Dyspnoea [None]
  - Hypotension [None]
  - Rash [None]
  - Weight decreased [None]
